FAERS Safety Report 7678517-6 (Version None)
Quarter: 2011Q3

REPORT INFORMATION
  Report Type: 
  Country: None (occurrence: None)
  Receive Date: 20110811
  Receipt Date: 20110801
  Transmission Date: 20111222
  Serious: Yes (Other)
  Sender: FDA-Public Use
  Company Number: IL-GENENTECH-321268

PATIENT
  Age: 26 Year
  Sex: Female

DRUGS (4)
  1. PULMOZYME [Suspect]
     Dosage: UNK
     Route: 055
  2. PULMOZYME [Suspect]
     Indication: CYSTIC FIBROSIS
     Dosage: UNK
     Route: 055
  3. SODIUM CHLORIDE CONCENTRATED INJ [Concomitant]
     Indication: PRODUCT USED FOR UNKNOWN INDICATION
     Dosage: UNK
     Route: 055
  4. PULMOZYME [Suspect]
     Dosage: UNK
     Route: 055

REACTIONS (1)
  - HAEMOPTYSIS [None]
